FAERS Safety Report 20172123 (Version 1)
Quarter: 2021Q4

REPORT INFORMATION
  Report Type: Report from Study
  Country: TW (occurrence: TW)
  Receive Date: 20211210
  Receipt Date: 20211210
  Transmission Date: 20220303
  Serious: Yes (Hospitalization)
  Sender: FDA-Public Use
  Company Number: TW-BoehringerIngelheim-2021-BI-142043

PATIENT
  Age: 56 Year
  Sex: Male
  Weight: 40 kg

DRUGS (5)
  1. INVESTIGATIONAL PRODUCT [Suspect]
     Active Substance: INVESTIGATIONAL PRODUCT
     Indication: Oesophageal squamous cell carcinoma
     Dosage: 0
     Route: 042
     Dates: start: 20210901
  2. AFATINIB [Suspect]
     Active Substance: AFATINIB
     Indication: Oesophageal squamous cell carcinoma
     Route: 048
     Dates: start: 20210901
  3. DEXTROMETHORPHAN HYDROBROMIDE\POTASSIUM CREOSOTESULFONATE [Concomitant]
     Active Substance: DEXTROMETHORPHAN HYDROBROMIDE\POTASSIUM CREOSOTESULFONATE
     Indication: Prophylaxis
     Dosage: 1#QN
     Route: 048
     Dates: start: 20211025
  4. EURODIN [DIHYDROERGOCRISTINE MESILATE] [Concomitant]
     Indication: Insomnia
     Dosage: 1#HS
     Route: 048
     Dates: start: 20210823
  5. NEXIUM [Concomitant]
     Active Substance: ESOMEPRAZOLE MAGNESIUM
     Indication: Gastrooesophageal reflux disease
     Dosage: 1#QD
     Route: 048
     Dates: start: 20210922

REACTIONS (1)
  - Hepatitis [Recovered/Resolved]

NARRATIVE: CASE EVENT DATE: 20211118
